FAERS Safety Report 8055175-2 (Version None)
Quarter: 2012Q1

REPORT INFORMATION
  Report Type: 
  Country: None (occurrence: None)
  Receive Date: 20120119
  Receipt Date: 20120112
  Transmission Date: 20120608
  Serious: Yes (Hospitalization)
  Sender: FDA-Public Use
  Company Number: PHHY2012AR002897

PATIENT
  Sex: Male

DRUGS (1)
  1. TRILEPTAL [Suspect]
     Indication: CONVULSION
     Dosage: UNK UKN, UNK
     Dates: start: 20110701, end: 20110801

REACTIONS (4)
  - MALAISE [None]
  - CARDIAC FAILURE [None]
  - INFARCTION [None]
  - DRUG INTOLERANCE [None]
